FAERS Safety Report 17792326 (Version 5)
Quarter: 2022Q3

REPORT INFORMATION
  Report Type: Spontaneous
  Country: CA (occurrence: CA)
  Receive Date: 20200515
  Receipt Date: 20220708
  Transmission Date: 20221026
  Serious: Yes (Hospitalization, Other)
  Sender: FDA-Public Use
  Company Number: CA-GLAXOSMITHKLINE-CA2020AMR081540

PATIENT

DRUGS (1)
  1. BENLYSTA [Suspect]
     Active Substance: BELIMUMAB
     Indication: Systemic lupus erythematosus
     Dosage: UNK, 920MG/ 4 WEEKS

REACTIONS (11)
  - Post procedural infection [Unknown]
  - Spinal operation [Unknown]
  - Transient ischaemic attack [Unknown]
  - Lupus-like syndrome [Unknown]
  - Nervous system disorder [Unknown]
  - Peroneal nerve palsy [Unknown]
  - Product dose omission issue [Unknown]
  - Alopecia [Unknown]
  - Fatigue [Unknown]
  - Rhinorrhoea [Unknown]
  - Multiple allergies [Unknown]
